FAERS Safety Report 8574758-4 (Version None)
Quarter: 2012Q3

REPORT INFORMATION
  Report Type: 
  Country: None (occurrence: None)
  Receive Date: 20120807
  Receipt Date: 20120727
  Transmission Date: 20120928
  Serious: No
  Sender: FDA-Public Use
  Company Number: US-009507513-1208USA000268

PATIENT

DRUGS (2)
  1. SINGULAIR [Suspect]
     Dosage: 5 MG, QD
     Route: 048
     Dates: start: 20100101
  2. SINGULAIR [Suspect]
     Indication: HYPERSENSITIVITY
     Dosage: 5 MG, 3 TO 4 TABLETS A DAY
     Route: 048
     Dates: start: 20120705, end: 20120726

REACTIONS (2)
  - NO ADVERSE EVENT [None]
  - OVERDOSE [None]
